FAERS Safety Report 9267615 (Version 1)
Quarter: 2013Q2

REPORT INFORMATION
  Report Type: Spontaneous
  Country: US (occurrence: US)
  Receive Date: 20130502
  Receipt Date: 20130502
  Transmission Date: 20140414
  Serious: No
  Sender: FDA-Public Use
  Company Number: US-ALEXION-A201200634

PATIENT
  Age: 45 Year
  Sex: Female

DRUGS (3)
  1. SOLIRIS 300MG [Suspect]
     Indication: PAROXYSMAL NOCTURNAL HAEMOGLOBINURIA
     Dosage: 600 MG, QW
     Route: 042
     Dates: start: 20120402
  2. WARFARIN [Concomitant]
     Dosage: UNK
  3. CIPRO [Concomitant]
     Dosage: UNK
     Dates: start: 20120402

REACTIONS (1)
  - Headache [Recovered/Resolved]
